FAERS Safety Report 11615377 (Version 2)
Quarter: 2015Q4

REPORT INFORMATION
  Report Type: Report from Study
  Country: US (occurrence: US)
  Receive Date: 20151009
  Receipt Date: 20151105
  Transmission Date: 20160304
  Serious: Yes (Hospitalization)
  Sender: FDA-Public Use
  Company Number: US-ASTELLAS-2015US031375

PATIENT
  Age: 57 Year
  Sex: Male

DRUGS (18)
  1. DOCETAXEL. [Suspect]
     Active Substance: DOCETAXEL
     Route: 065
     Dates: start: 20150618, end: 20150618
  2. NEURONTIN [Concomitant]
     Active Substance: GABAPENTIN
     Indication: PRODUCT USED FOR UNKNOWN INDICATION
     Route: 048
  3. LOPRESSOR [Concomitant]
     Active Substance: METOPROLOL TARTRATE
     Indication: VENTRICULAR EXTRASYSTOLES
     Dosage: UNK UNK, UNKNOWN FREQ.
     Route: 048
  4. CISPLATIN. [Suspect]
     Active Substance: CISPLATIN
     Indication: SQUAMOUS CELL CARCINOMA OF THE ORAL CAVITY
     Route: 065
     Dates: start: 20150529, end: 20150529
  5. CISPLATIN. [Suspect]
     Active Substance: CISPLATIN
     Route: 065
     Dates: start: 20150801, end: 20150801
  6. DOCETAXEL. [Suspect]
     Active Substance: DOCETAXEL
     Route: 065
     Dates: start: 20150709, end: 20150709
  7. CITROMA [Concomitant]
     Active Substance: MAGNESIUM CITRATE
     Indication: PRODUCT USED FOR UNKNOWN INDICATION
     Dosage: 1/745 GM/30ML, UNKNOWN FREQ.
     Route: 065
  8. BLINDED ERLOTINIB [Suspect]
     Active Substance: ERLOTINIB
     Route: 048
     Dates: start: 20150710, end: 20150818
  9. ZANTAC [Concomitant]
     Active Substance: RANITIDINE HYDROCHLORIDE
     Indication: PRODUCT USED FOR UNKNOWN INDICATION
     Route: 048
  10. CISPLATIN. [Suspect]
     Active Substance: CISPLATIN
     Route: 065
     Dates: start: 20150618, end: 20150618
  11. CISPLATIN. [Suspect]
     Active Substance: CISPLATIN
     Route: 065
     Dates: start: 20150709, end: 20150709
  12. DOCETAXEL. [Suspect]
     Active Substance: DOCETAXEL
     Indication: SQUAMOUS CELL CARCINOMA OF THE ORAL CAVITY
     Route: 065
     Dates: start: 20150529, end: 20150529
  13. VITAMINS WITH MINERALS [Concomitant]
     Active Substance: MINERALS\VITAMINS
     Indication: PRODUCT USED FOR UNKNOWN INDICATION
     Route: 048
  14. BLINDED ERLOTINIB [Suspect]
     Active Substance: ERLOTINIB
     Indication: SQUAMOUS CELL CARCINOMA OF THE ORAL CAVITY
     Route: 048
     Dates: start: 20150529, end: 20150618
  15. BLINDED ERLOTINIB [Suspect]
     Active Substance: ERLOTINIB
     Route: 048
     Dates: start: 20150619, end: 20150709
  16. DOCETAXEL. [Suspect]
     Active Substance: DOCETAXEL
     Route: 065
     Dates: start: 20150801, end: 20150801
  17. CHILDRENS ASPIRIN [Concomitant]
     Active Substance: ASPIRIN
     Indication: PRODUCT USED FOR UNKNOWN INDICATION
     Route: 048
  18. NEULASTA [Concomitant]
     Active Substance: PEGFILGRASTIM
     Indication: PRODUCT USED FOR UNKNOWN INDICATION
     Dosage: 6 MG/ML, UNKNOWN FREQ.
     Route: 065

REACTIONS (3)
  - Anaemia [Recovered/Resolved]
  - Small intestinal haemorrhage [Recovered/Resolved]
  - Off label use [Unknown]

NARRATIVE: CASE EVENT DATE: 20150818
